FAERS Safety Report 8793788 (Version 3)
Quarter: 2013Q4

REPORT INFORMATION
  Report Type: Report from Study
  Country: JP (occurrence: JP)
  Receive Date: 20120917
  Receipt Date: 20131219
  Transmission Date: 20140711
  Serious: Yes (Other)
  Sender: FDA-Public Use
  Company Number: JP-VERTEX PHARMACEUTICAL INC.-2012-021043

PATIENT
  Age: 63 Year
  Sex: Female

DRUGS (11)
  1. VX-950 (TELAPREVIR) [Suspect]
     Indication: CHRONIC HEPATITIS C
     Dosage: 1500 MG, QD
     Route: 048
     Dates: start: 20120605, end: 20120813
  2. REBETOL [Suspect]
     Indication: CHRONIC HEPATITIS C
     Dosage: 800 MG, QD
     Route: 048
     Dates: start: 20120605, end: 20120709
  3. REBETOL [Suspect]
     Dosage: 600 MG, QD
     Route: 048
     Dates: start: 20120710, end: 20120716
  4. REBETOL [Suspect]
     Dosage: 400 MG, QD
     Route: 048
     Dates: start: 20120717, end: 20120723
  5. REBETOL [Suspect]
     Dosage: 200 MG, QD
     Route: 048
     Dates: start: 20120724, end: 20120806
  6. PEGINTRON [Suspect]
     Indication: CHRONIC HEPATITIS C
     Dosage: 1.5 ?G/KG, QW
     Route: 058
     Dates: start: 20120605, end: 20120703
  7. PEGINTRON [Suspect]
     Dosage: 1.2 ?G/KG, QW
     Route: 058
     Dates: start: 20120710, end: 20120717
  8. PEGINTRON [Suspect]
     Dosage: 1.5 ?G/KG, QW
     Route: 058
     Dates: start: 20120724, end: 20120731
  9. PEGINTRON [Suspect]
     Dosage: 1.2 ?G/KG, QW
     Route: 058
     Dates: start: 20120807, end: 20120821
  10. LORFENAMIN [Concomitant]
     Dosage: 8 DF, QD
     Route: 048
     Dates: start: 20120605, end: 20120821
  11. ALLOPURINOL [Concomitant]
     Dosage: 1 DF, QD
     Route: 048
     Dates: start: 20120612, end: 20120821

REACTIONS (3)
  - Herpes zoster [Recovered/Resolved]
  - Anaemia [Unknown]
  - Platelet count decreased [Unknown]
